FAERS Safety Report 5373512-4 (Version None)
Quarter: 2007Q2

REPORT INFORMATION
  Report Type: 
  Country: None (occurrence: None)
  Receive Date: 20070628
  Receipt Date: 20070626
  Transmission Date: 20071010
  Serious: Yes (Hospitalization)
  Sender: FDA-Public Use
  Company Number: A0660239A

PATIENT
  Age: 44 Year
  Sex: Female

DRUGS (3)
  1. AVANDIA [Suspect]
     Route: 048
     Dates: start: 20040101, end: 20070401
  2. AVANDAMET [Suspect]
     Route: 048
     Dates: start: 20070401, end: 20070625
  3. IRON PILLS [Concomitant]

REACTIONS (3)
  - CHEST PAIN [None]
  - PAIN [None]
  - ROAD TRAFFIC ACCIDENT [None]
